FAERS Safety Report 7085624-8 (Version None)
Quarter: 2010Q4

REPORT INFORMATION
  Report Type: 
  Country: None (occurrence: None)
  Receive Date: 20101027
  Receipt Date: 20101021
  Transmission Date: 20110411
  Serious: Yes (Other)
  Sender: FDA-Public Use
  Company Number: 10252010-MH-C

PATIENT
  Age: 71 Year
  Sex: Female

DRUGS (5)
  1. HURRICAINE TOPICAL ANESTHETIC SPRAY - 20% BENZOCAINE [Suspect]
     Indication: ENDOSCOPY UPPER GASTROINTESTINAL TRACT
     Dosage: 1 SPRAY
     Route: 061
     Dates: start: 20100812
  2. CEPHALEXIN 500 MG POTID [Concomitant]
  3. ROBITUSSIN WITH CODEINE [Concomitant]
  4. DAROCET N100 TID [Concomitant]
  5. CENTRUM A-Z MULTIVITAMIN [Concomitant]

REACTIONS (4)
  - CONFUSIONAL STATE [None]
  - HEART RATE DECREASED [None]
  - RESPIRATORY ARREST [None]
  - SPEECH DISORDER [None]
